FAERS Safety Report 7176524-3 (Version None)
Quarter: 2010Q4

REPORT INFORMATION
  Report Type: 
  Country: None (occurrence: None)
  Receive Date: 20101220
  Receipt Date: 20101216
  Transmission Date: 20110411
  Serious: Yes (Other)
  Sender: FDA-Public Use
  Company Number: US-PFIZER INC-2010174044

PATIENT
  Sex: Female
  Weight: 57.6 kg

DRUGS (2)
  1. PREMARIN [Suspect]
     Indication: OFF LABEL USE
     Dosage: 0.5 G, 2X/WEEK
     Route: 067
     Dates: start: 20100901
  2. PREMARIN [Suspect]
     Indication: DYSMENORRHOEA

REACTIONS (3)
  - BURNING SENSATION [None]
  - CONVULSION [None]
  - DEPRESSION [None]
